FAERS Safety Report 6974861-6 (Version None)
Quarter: 2010Q3

REPORT INFORMATION
  Report Type: 
  Country: None (occurrence: None)
  Receive Date: 20100909
  Receipt Date: 20081216
  Transmission Date: 20110219
  Serious: No
  Sender: FDA-Public Use
  Company Number: US-WYE-H07343208

PATIENT
  Sex: Female

DRUGS (11)
  1. PROTONIX [Suspect]
     Route: 048
     Dates: start: 20061201
  2. LEVOTHYROXINE SODIUM [Concomitant]
  3. COMPAZINE [Concomitant]
  4. ELAVIL [Concomitant]
  5. ALBUTEROL [Concomitant]
  6. DICYCLOVERINE HYDROCHLORIDE [Concomitant]
  7. LORATADINE [Concomitant]
  8. LYRICA [Concomitant]
  9. PRAVASTATIN SODIUM [Concomitant]
  10. MOBIC [Concomitant]
  11. LEXAPRO [Concomitant]

REACTIONS (2)
  - DRUG SCREEN POSITIVE [None]
  - VITAMIN B12 DECREASED [None]
